FAERS Safety Report 15253681 (Version 1)
Quarter: 2018Q3

REPORT INFORMATION
  Report Type: Spontaneous
  Country: US (occurrence: US)
  Receive Date: 20180808
  Receipt Date: 20180808
  Transmission Date: 20181010
  Serious: Yes (Other)
  Sender: FDA-Public Use
  Company Number: US-AMGEN-USASP2018105847

PATIENT
  Age: 54 Year
  Sex: Female

DRUGS (1)
  1. PROLIA [Suspect]
     Active Substance: DENOSUMAB
     Indication: OSTEOPOROSIS POSTMENOPAUSAL
     Dosage: UNK
     Route: 065
     Dates: start: 20180524

REACTIONS (12)
  - Loss of consciousness [Unknown]
  - Back pain [Unknown]
  - Dizziness [Recovered/Resolved]
  - Device fastener issue [Unknown]
  - Bone pain [Unknown]
  - Bladder irritation [Unknown]
  - Insomnia [Unknown]
  - Pyrexia [Unknown]
  - Intervertebral disc protrusion [Unknown]
  - Nausea [Recovered/Resolved]
  - Tooth fracture [Unknown]
  - Arthralgia [Recovered/Resolved]

NARRATIVE: CASE EVENT DATE: 2018
